FAERS Safety Report 21760347 (Version 1)
Quarter: 2022Q4

REPORT INFORMATION
  Report Type: Spontaneous
  Country: US (occurrence: US)
  Receive Date: 20221221
  Receipt Date: 20221221
  Transmission Date: 20230113
  Serious: Yes (Hospitalization, Other)
  Sender: FDA-Public Use
  Company Number: US-ELI_LILLY_AND_COMPANY-US202212009249

PATIENT
  Sex: Female

DRUGS (2)
  1. EMGALITY [Suspect]
     Active Substance: GALCANEZUMAB-GNLM
     Indication: Migraine prophylaxis
     Dosage: 120 MG, UNKNOWN
     Route: 058
     Dates: start: 2019
  2. LYRICA [Concomitant]
     Active Substance: PREGABALIN
     Indication: Product used for unknown indication

REACTIONS (7)
  - Humerus fracture [Unknown]
  - Scapula fracture [Unknown]
  - Clavicle fracture [Unknown]
  - Upper limb fracture [Unknown]
  - Pulmonary haemorrhage [Unknown]
  - Rib fracture [Unknown]
  - Road traffic accident [Unknown]

NARRATIVE: CASE EVENT DATE: 20220510
